FAERS Safety Report 6341686-4 (Version None)
Quarter: 2009Q3

REPORT INFORMATION
  Report Type: 
  Country: None (occurrence: None)
  Receive Date: 20090902
  Receipt Date: 20090902
  Transmission Date: 20100115
  Serious: Yes (Other)
  Sender: FDA-Public Use
  Company Number: None

PATIENT
  Age: 35 Year
  Sex: Female
  Weight: 72.5755 kg

DRUGS (1)
  1. YAZ [Suspect]
     Indication: CONTRACEPTION
     Dosage: 1 PILL ONCE DAILY

REACTIONS (11)
  - ABDOMINAL DISTENSION [None]
  - ABDOMINAL PAIN [None]
  - AGGRESSION [None]
  - ANGER [None]
  - DIZZINESS [None]
  - DRY EYE [None]
  - FATIGUE [None]
  - HEADACHE [None]
  - MENORRHAGIA [None]
  - PHYSICAL ASSAULT [None]
  - VAGINAL HAEMORRHAGE [None]
